FAERS Safety Report 8791078 (Version 1)
Quarter: 2012Q4

REPORT INFORMATION
  Report Type: Spontaneous
  Country: US (occurrence: None)
  Receive Date: 20120913
  Receipt Date: 20120913
  Transmission Date: 20130627
  Serious: Yes (Other)
  Sender: FDA-Public Use
  Company Number: None

PATIENT
  Age: 65 Year
  Sex: Male

DRUGS (1)
  1. TARCEVA [Suspect]
     Dosage: 100 mg QD PO
     Route: 048
     Dates: start: 20120816, end: 20120907

REACTIONS (1)
  - Drug ineffective [None]
